FAERS Safety Report 8108719-6 (Version None)
Quarter: 2012Q1

REPORT INFORMATION
  Report Type: 
  Country: None (occurrence: None)
  Receive Date: 20120202
  Receipt Date: 20120105
  Transmission Date: 20120608
  Serious: No
  Sender: FDA-Public Use
  Company Number: US-AMGEN-USASP2011058172

PATIENT
  Age: 73 Year
  Sex: Male

DRUGS (6)
  1. TRAMADOL HCL [Concomitant]
     Dosage: UNK
  2. PLAVIX [Concomitant]
     Dosage: UNK
  3. AVAPRO [Concomitant]
     Dosage: UNK
  4. CLOMIPRAMINE HCL [Concomitant]
     Dosage: UNK
  5. ENBREL [Suspect]
     Indication: PSORIASIS
     Dosage: 50 MG, QWK
     Dates: start: 20100901
  6. AMLODIPINE [Concomitant]
     Dosage: UNK

REACTIONS (2)
  - INTERVERTEBRAL DISC DISORDER [None]
  - HYPOAESTHESIA [None]
